FAERS Safety Report 10226437 (Version 2)
Quarter: 2014Q2

REPORT INFORMATION
  Report Type: Spontaneous
  Country: US (occurrence: US)
  Receive Date: 20140609
  Receipt Date: 20140609
  Transmission Date: 20141212
  Serious: No
  Sender: FDA-Public Use
  Company Number: US-AMGEN INC.-USASP2013056951

PATIENT
  Age: 57 Year
  Sex: Female
  Weight: 97.51 kg

DRUGS (7)
  1. PROCRIT [Suspect]
     Indication: ANAEMIA
     Dosage: 20000 UNIT, QWK
     Route: 058
     Dates: start: 2012
  2. HUMALOG [Concomitant]
     Indication: DIABETES MELLITUS
     Dosage: 14 UNIT, TWICE A DAY
     Route: 058
     Dates: start: 2012
  3. LANTUS [Concomitant]
     Indication: DIABETES MELLITUS
     Dosage: 30 UNIT, QD AT BED TIME
     Route: 058
     Dates: start: 2012
  4. ZOLOFT [Concomitant]
     Indication: DEPRESSION
     Dosage: UNK UNK, QD
     Route: 048
  5. CYMBALTA [Concomitant]
     Indication: NEUROPATHY PERIPHERAL
     Dosage: 60 MG, QD
     Route: 048
  6. COZAAR [Concomitant]
     Indication: BLOOD PRESSURE
     Dosage: UNK UNK, QD
     Route: 048
  7. AMITRIPTYLINE [Concomitant]
     Indication: CYSTITIS INTERSTITIAL
     Dosage: UNK UNK, QD
     Route: 048

REACTIONS (1)
  - Accidental exposure to product [Recovered/Resolved]
